FAERS Safety Report 9656476 (Version 2)
Quarter: 2014Q2

REPORT INFORMATION
  Report Type: Report from Study
  Country: CA (occurrence: CA)
  Receive Date: 20131030
  Receipt Date: 20140403
  Transmission Date: 20141212
  Serious: Yes (Hospitalization, Other)
  Sender: FDA-Public Use
  Company Number: CA-JNJFOC-20131014725

PATIENT
  Age: 50 Year
  Sex: Female
  Weight: 62 kg

DRUGS (13)
  1. REMICADE [Suspect]
     Indication: CROHN^S DISEASE
     Route: 042
     Dates: start: 20100301, end: 20131023
  2. ROCALTROL [Concomitant]
     Dosage: 3 CAPSULES
     Route: 065
  3. CALCIUM WITH VITAMIN D [Concomitant]
     Route: 065
  4. MAGNESIUM [Concomitant]
     Route: 065
  5. CIPRALEX [Concomitant]
     Route: 065
  6. SYNTHROID [Concomitant]
     Route: 065
  7. APO K [Concomitant]
     Route: 048
  8. TRAZODONE [Concomitant]
     Dosage: 100 (UNIT UNSPECIFIED) QHS (EVERY NIGHT)
     Route: 065
  9. CODEINE [Concomitant]
     Route: 065
  10. LEVOTHYROXINE [Concomitant]
     Route: 048
  11. VANCOMYCIN [Concomitant]
     Route: 065
  12. PREGABALIN [Concomitant]
     Route: 065
  13. LOSEC [Concomitant]
     Route: 065

REACTIONS (8)
  - Hepatobiliary cancer [Unknown]
  - Confusional state [Unknown]
  - Cirrhosis alcoholic [Unknown]
  - Parotitis [Unknown]
  - Fall [Unknown]
  - Device related infection [Unknown]
  - Haematoma [Unknown]
  - Portal hypertension [Unknown]
